FAERS Safety Report 24751598 (Version 2)
Quarter: 2025Q1

REPORT INFORMATION
  Report Type: Report from Study
  Country: US (occurrence: US)
  Receive Date: 20241219
  Receipt Date: 20250121
  Transmission Date: 20250408
  Serious: Yes (Hospitalization, Other)
  Sender: ABBVIE
  Company Number: US-ABBVIE-6050811

PATIENT
  Age: 81 Year
  Sex: Male

DRUGS (2)
  1. DUOPA [Suspect]
     Active Substance: CARBIDOPA\LEVODOPA
     Indication: Parkinson^s disease
     Route: 050
     Dates: start: 202208
  2. DUOPA [Suspect]
     Active Substance: CARBIDOPA\LEVODOPA

REACTIONS (5)
  - Movement disorder [Unknown]
  - Joint dislocation [Recovering/Resolving]
  - Hip arthroplasty [Unknown]
  - Delirium [Unknown]
  - Dyskinesia [Unknown]

NARRATIVE: CASE EVENT DATE: 20240101
